FAERS Safety Report 9225681 (Version 2)
Quarter: 2013Q3

REPORT INFORMATION
  Report Type: Spontaneous
  Country: TR (occurrence: TR)
  Receive Date: 20130411
  Receipt Date: 20130812
  Transmission Date: 20140515
  Serious: Yes (Other)
  Sender: FDA-Public Use
  Company Number: TR-ELI_LILLY_AND_COMPANY-TR201304001824

PATIENT
  Age: 30 Year
  Sex: Male

DRUGS (7)
  1. HUMALOG LISPRO [Suspect]
     Dosage: 5 IU, SINGLE
     Route: 058
     Dates: start: 20130401, end: 20130401
  2. HUMALOG LISPRO [Suspect]
     Dosage: UNK, TID
     Route: 058
     Dates: start: 20130402, end: 20130402
  3. HUMALOG LISPRO [Suspect]
     Dosage: UNK, BID
     Route: 058
     Dates: start: 20130403, end: 20130403
  4. HUMALOG LISPRO [Suspect]
     Dosage: 5 U, TID
     Route: 058
  5. LANTUS [Concomitant]
     Dosage: 6 IU, EACH EVENING
     Dates: start: 20130401
  6. GLUKOFEN [Concomitant]
     Dosage: 500 MG, BID
  7. METFORMIN [Concomitant]
     Dosage: 0.5 G, BID
     Dates: start: 20130402

REACTIONS (3)
  - Haemolytic anaemia [Unknown]
  - Aspartate aminotransferase increased [Unknown]
  - Blood bilirubin increased [Unknown]
